FAERS Safety Report 23155349 (Version 4)
Quarter: 2024Q1

REPORT INFORMATION
  Report Type: Spontaneous
  Country: US (occurrence: US)
  Receive Date: 20231107
  Receipt Date: 20240116
  Transmission Date: 20240410
  Serious: No
  Sender: FDA-Public Use
  Company Number: US-SA-SAC20231030000988

PATIENT
  Age: 12 Year
  Sex: Female

DRUGS (2)
  1. DUPIXENT [Suspect]
     Active Substance: DUPILUMAB
     Indication: Dermatitis atopic
     Dosage: 400 MG, 1X
     Route: 058
     Dates: start: 20230727, end: 20230727
  2. DUPIXENT [Suspect]
     Active Substance: DUPILUMAB
     Dosage: 200 MG, QOW
     Route: 058
     Dates: start: 202308

REACTIONS (6)
  - Erythema [Unknown]
  - Eye inflammation [Unknown]
  - Eye swelling [Unknown]
  - Eye irritation [Unknown]
  - Ocular hyperaemia [Unknown]
  - Device dispensing error [Unknown]

NARRATIVE: CASE EVENT DATE: 20230101
